FAERS Safety Report 22141824 (Version 5)
Quarter: 2023Q4

REPORT INFORMATION
  Report Type: Spontaneous
  Country: US (occurrence: US)
  Receive Date: 20230327
  Receipt Date: 20231018
  Transmission Date: 20240110
  Serious: No
  Sender: FDA-Public Use
  Company Number: US-PFIZER INC-PV202300055689

PATIENT
  Age: 78 Year
  Sex: Female

DRUGS (6)
  1. BRAFTOVI [Suspect]
     Active Substance: ENCORAFENIB
     Indication: Neoplasm malignant
     Dosage: UNK (HAD 4)
  2. BRAFTOVI [Suspect]
     Active Substance: ENCORAFENIB
     Dosage: UNK (WENT TO 3 FOR SEVERAL MONTHS)
  3. BRAFTOVI [Suspect]
     Active Substance: ENCORAFENIB
     Dosage: UNK (WENT TO 2)
  4. BRAFTOVI [Suspect]
     Active Substance: ENCORAFENIB
     Dosage: 150 MG, 1X/DAY(2 PO (PER ORAL) QD (ONCE A DAY))
     Route: 048
  5. BRAFTOVI [Suspect]
     Active Substance: ENCORAFENIB
     Dosage: 300 MG, 1X/DAY
     Route: 048
  6. ERBITUX [Concomitant]
     Active Substance: CETUXIMAB
     Indication: Neoplasm malignant
     Dosage: UNK

REACTIONS (9)
  - Fungal infection [Unknown]
  - Tongue coated [Unknown]
  - Sinusitis [Unknown]
  - Gingival disorder [Unknown]
  - Vulvovaginal pruritus [Unknown]
  - Pruritus [Recovering/Resolving]
  - Urticaria [Recovering/Resolving]
  - Neoplasm progression [Unknown]
  - Candida infection [Unknown]
